FAERS Safety Report 4882556-8 (Version None)
Quarter: 2005Q4

REPORT INFORMATION
  Report Type: 
  Country: None (occurrence: None)
  Receive Date: 20051201
  Receipt Date: 20050928
  Transmission Date: 20060501
  Serious: No
  Sender: FDA-Public Use
  Company Number: 2005PV002736

PATIENT
  Age: 49 Year
  Sex: Female
  Weight: 139.2543 kg

DRUGS (8)
  1. BYETTA [Suspect]
     Indication: DIABETES MELLITUS NON-INSULIN-DEPENDENT
     Dosage: 5 MCG; BID; SC
     Route: 058
     Dates: start: 20050901
  2. METFORMIN HCL [Concomitant]
  3. PRILOSEC [Concomitant]
  4. ZANTAC [Concomitant]
  5. LASIX [Concomitant]
  6. TYLOX [Concomitant]
  7. OXYCODONE [Concomitant]
  8. ZANAFLEX [Concomitant]

REACTIONS (12)
  - BACK PAIN [None]
  - DECREASED APPETITE [None]
  - DIARRHOEA [None]
  - DYSPEPSIA [None]
  - FATIGUE [None]
  - HEADACHE [None]
  - INJECTION SITE PAIN [None]
  - NAUSEA [None]
  - NON-CARDIAC CHEST PAIN [None]
  - PHOTOPHOBIA [None]
  - VOMITING [None]
  - WEIGHT DECREASED [None]
